FAERS Safety Report 23875532 (Version 1)
Quarter: 2024Q2

REPORT INFORMATION
  Report Type: Spontaneous
  Country: US (occurrence: US)
  Receive Date: 20240520
  Receipt Date: 20240520
  Transmission Date: 20240716
  Serious: Yes (Other)
  Sender: FDA-Public Use
  Company Number: US-009507513-2405USA005453

PATIENT
  Age: 59 Year
  Sex: Female
  Weight: 115.8 kg

DRUGS (1)
  1. CUBICIN [Suspect]
     Active Substance: DAPTOMYCIN
     Indication: Endocarditis
     Dosage: 1000 MILLIGRAM, Q24H FOR THREE WEEKS
     Route: 042

REACTIONS (1)
  - Eosinophilic pneumonia [Unknown]
